FAERS Safety Report 8955220 (Version 1)
Quarter: 2012Q4

REPORT INFORMATION
  Report Type: 
  Country: US (occurrence: US)
  Receive Date: 20121207
  Receipt Date: 20121207
  Transmission Date: 20130627
  Serious: Yes (Other)
  Sender: FDA-Public Use
  Company Number: US-ROCHE-1154351

PATIENT
  Age: 26 Year
  Sex: Male
  Weight: 84 kg

DRUGS (3)
  1. ZELBORAF [Suspect]
     Indication: MALIGNANT MELANOMA
     Route: 048
     Dates: start: 20120829, end: 20120909
  2. ZELBORAF [Suspect]
     Route: 048
     Dates: start: 20120925
  3. IPILIMUMAB [Concomitant]

REACTIONS (8)
  - Laryngeal oedema [Recovered/Resolved]
  - Anaphylactic shock [Unknown]
  - Arthralgia [Recovered/Resolved]
  - Pruritus [Recovered/Resolved]
  - Pyrexia [Unknown]
  - Nausea [Unknown]
  - Periorbital oedema [Unknown]
  - Rash [Recovered/Resolved]
